FAERS Safety Report 18821916 (Version 1)
Quarter: 2021Q1

REPORT INFORMATION
  Report Type: Spontaneous
  Country: CN (occurrence: CN)
  Receive Date: 20210202
  Receipt Date: 20210202
  Transmission Date: 20210419
  Serious: Yes (Life-Threatening, Other)
  Sender: FDA-Public Use
  Company Number: CN-BAYER-2021-048373

PATIENT
  Age: 35 Year
  Sex: Male

DRUGS (5)
  1. RIFAMPICIN [Suspect]
     Active Substance: RIFAMPIN
     Indication: MYCOBACTERIAL INFECTION
     Dosage: 0.45 G, QD
     Route: 048
     Dates: start: 20190720, end: 20191021
  2. AVELOX [Suspect]
     Active Substance: MOXIFLOXACIN HYDROCHLORIDE
     Indication: MYCOBACTERIAL INFECTION
     Dosage: 0.4 G, QD
     Route: 048
     Dates: start: 20190720, end: 20201229
  3. ETHAMBUTOL HYDROCHLORIDE. [Concomitant]
     Active Substance: ETHAMBUTOL HYDROCHLORIDE
  4. CLARITHROMYCIN. [Concomitant]
     Active Substance: CLARITHROMYCIN
  5. AMIKACIN SULFATE. [Concomitant]
     Active Substance: AMIKACIN SULFATE

REACTIONS (3)
  - Product use in unapproved indication [None]
  - Granulocytopenia [Recovering/Resolving]
  - Off label use [None]

NARRATIVE: CASE EVENT DATE: 20190720
